FAERS Safety Report 5004916-7 (Version None)
Quarter: 2006Q1

REPORT INFORMATION
  Report Type: 
  Country: None (occurrence: None)
  Receive Date: 20060321
  Receipt Date: 20060214
  Transmission Date: 20060701
  Serious: No
  Sender: FDA-Public Use
  Company Number: 2006US000387

PATIENT
  Age: 66 Year
  Sex: Female

DRUGS (10)
  1. VESICARE [Suspect]
     Indication: HYPERTONIC BLADDER
     Dosage: 5 MG, ORAL
     Route: 048
  2. AVAPRO [Concomitant]
  3. LOPRESSOR [Concomitant]
  4. LASIX [Concomitant]
  5. EFFEXOR [Concomitant]
  6. PREDNISONE TAB [Concomitant]
  7. POTASSIUM (POTASSIUM) [Concomitant]
  8. VITAMIN B6 [Concomitant]
  9. ARIMIDEX [Concomitant]
  10. BONIVA (IBANDRONATE SODIUM) [Concomitant]

REACTIONS (1)
  - HYPERTENSION [None]
